FAERS Safety Report 7231273-8 (Version None)
Quarter: 2011Q1

REPORT INFORMATION
  Report Type: 
  Country: None (occurrence: None)
  Receive Date: 20110118
  Receipt Date: 20110107
  Transmission Date: 20110831
  Serious: Yes (Other)
  Sender: FDA-Public Use
  Company Number: US-ASTRAZENECA-2011SE01083

PATIENT
  Age: 607 Month
  Sex: Female
  Weight: 49.9 kg

DRUGS (10)
  1. PULMICORT RESPULES [Concomitant]
  2. DOXYCYCLINE [Concomitant]
  3. NEXIUM [Suspect]
     Route: 048
     Dates: start: 20080101
  4. ATENOLOL [Concomitant]
  5. SYNTHROID [Concomitant]
  6. ERBITUX [Concomitant]
  7. ZOLOFT [Concomitant]
  8. CARAFATE [Concomitant]
  9. PREMPRO [Concomitant]
  10. ALBUTEROL [Concomitant]

REACTIONS (2)
  - METASTASES TO LUNG [None]
  - THROAT CANCER [None]
